FAERS Safety Report 17523934 (Version 2)
Quarter: 2025Q2

REPORT INFORMATION
  Report Type: Spontaneous
  Country: US (occurrence: US)
  Receive Date: 20200311
  Receipt Date: 20250621
  Transmission Date: 20250716
  Serious: Yes (Hospitalization, Other)
  Sender: AUROBINDO
  Company Number: US-MLMSERVICE-20200224-2183208-1

PATIENT
  Age: 13 Year
  Sex: Male

DRUGS (3)
  1. METHOTREXATE [Suspect]
     Active Substance: METHOTREXATE
     Indication: B-cell lymphoma recurrent
     Route: 037
  2. CLOFARABINE [Suspect]
     Active Substance: CLOFARABINE
     Indication: B-cell lymphoma recurrent
     Route: 037
  3. CYTARABINE [Suspect]
     Active Substance: CYTARABINE
     Indication: B-cell lymphoma recurrent
     Route: 037

REACTIONS (5)
  - Clostridium difficile infection [Unknown]
  - Febrile neutropenia [Unknown]
  - Thrombocytopenia [Unknown]
  - Anaemia [Unknown]
  - Therapy partial responder [Unknown]
